FAERS Safety Report 4380952-9 (Version None)
Quarter: 2004Q2

REPORT INFORMATION
  Report Type: 
  Country: None (occurrence: None)
  Receive Date: 20040618
  Receipt Date: 20040608
  Transmission Date: 20050107
  Serious: Yes (Life-Threatening, Hospitalization)
  Sender: FDA-Public Use
  Company Number: GB-MERCK-0406GBR00075

PATIENT
  Age: 64 Year
  Sex: Male

DRUGS (3)
  1. CLOPIDOGREL BISULFATE [Concomitant]
     Route: 048
     Dates: start: 20040506, end: 20040527
  2. NIFEDIPINE [Concomitant]
     Route: 048
     Dates: start: 20040506, end: 20040527
  3. SIMVASTATIN [Suspect]
     Indication: BLOOD CHOLESTEROL INCREASED
     Route: 048
     Dates: start: 20040501, end: 20040527

REACTIONS (4)
  - BLOOD CREATINE PHOSPHOKINASE INCREASED [None]
  - MUSCULAR WEAKNESS [None]
  - MYALGIA [None]
  - RENAL FAILURE ACUTE [None]
